FAERS Safety Report 15703010 (Version 3)
Quarter: 2018Q4

REPORT INFORMATION
  Report Type: Spontaneous
  Country: US (occurrence: US)
  Receive Date: 20181210
  Receipt Date: 20181217
  Transmission Date: 20190205
  Serious: Yes (Other)
  Sender: FDA-Public Use
  Company Number: US-TEVA-2018-US-984125

PATIENT
  Age: 61 Year
  Sex: Male

DRUGS (4)
  1. ATENOLOL. [Suspect]
     Active Substance: ATENOLOL
     Indication: DEEP VEIN THROMBOSIS
     Dosage: 12.5 MILLIGRAM DAILY;
     Route: 065
     Dates: start: 2006
  2. ATENOLOL. [Suspect]
     Active Substance: ATENOLOL
     Indication: HYPERTENSION
     Dosage: 25 MILLIGRAM DAILY;
     Route: 065
     Dates: start: 2008, end: 20181128
  3. ATENOLOL. [Suspect]
     Active Substance: ATENOLOL
     Indication: PULMONARY EMBOLISM
  4. ATENOLOL. [Suspect]
     Active Substance: ATENOLOL
     Indication: HEART RATE INCREASED

REACTIONS (10)
  - Loss of consciousness [Unknown]
  - Weight loss diet [Unknown]
  - Wrong technique in product usage process [Unknown]
  - Syncope [Unknown]
  - Head injury [Unknown]
  - Drug ineffective [Unknown]
  - Fall [Unknown]
  - Heart rate decreased [Unknown]
  - Tachycardia [Unknown]
  - Hypotension [Unknown]

NARRATIVE: CASE EVENT DATE: 2017
